FAERS Safety Report 6257875-3 (Version None)
Quarter: 2009Q3

REPORT INFORMATION
  Report Type: 
  Country: None (occurrence: None)
  Receive Date: 20090707
  Receipt Date: 20090625
  Transmission Date: 20100115
  Serious: Yes (Death, Other)
  Sender: FDA-Public Use
  Company Number: US-RANBAXY-2009RR-24824

PATIENT
  Age: 62 Year
  Sex: Female

DRUGS (3)
  1. METFORMIN HCL [Suspect]
     Indication: TYPE 2 DIABETES MELLITUS
     Dosage: UNK
  2. TROGLITAZONE [Suspect]
     Dosage: 600 MG, UNK
  3. TROGLITAZONE [Suspect]
     Dosage: 400 MG, UNK

REACTIONS (1)
  - LIVER INJURY [None]
